FAERS Safety Report 24576639 (Version 4)
Quarter: 2024Q4

REPORT INFORMATION
  Report Type: Spontaneous
  Country: JP (occurrence: JP)
  Receive Date: 20241104
  Receipt Date: 20241226
  Transmission Date: 20250115
  Serious: Yes (Other)
  Sender: SANOFI AVENTIS
  Company Number: JP-SA-2024SA317001

PATIENT
  Age: 74 Year
  Sex: Female

DRUGS (8)
  1. RIFADIN [Interacting]
     Active Substance: RIFAMPIN
     Indication: Disseminated tuberculosis
     Dosage: UNK
  2. PREDNISOLONE [Interacting]
     Active Substance: PREDNISOLONE
     Indication: Pneumonia
     Dosage: 25 MG
     Route: 048
  3. PREDNISOLONE [Interacting]
     Active Substance: PREDNISOLONE
     Dosage: UNK
     Route: 048
  4. PREDNISOLONE [Interacting]
     Active Substance: PREDNISOLONE
     Dosage: 10 MG
     Route: 048
  5. PYRAZINAMIDE [Concomitant]
     Active Substance: PYRAZINAMIDE
     Indication: Disseminated tuberculosis
     Dosage: UNK
  6. LEVOFLOXACIN [Concomitant]
     Active Substance: LEVOFLOXACIN
     Indication: Disseminated tuberculosis
     Dosage: UNK
  7. ETHAMBUTOL [Concomitant]
     Active Substance: ETHAMBUTOL HYDROCHLORIDE
     Indication: Disseminated tuberculosis
     Dosage: UNK
  8. ISONIAZID [Concomitant]
     Active Substance: ISONIAZID
     Indication: Disseminated tuberculosis
     Dosage: UNK

REACTIONS (2)
  - Adrenal insufficiency [Unknown]
  - Drug interaction [Unknown]
